FAERS Safety Report 19946379 (Version 1)
Quarter: 2021Q4

REPORT INFORMATION
  Report Type: Spontaneous
  Country: DE (occurrence: DE)
  Receive Date: 20211012
  Receipt Date: 20211012
  Transmission Date: 20220303
  Serious: Yes (Hospitalization)
  Sender: FDA-Public Use
  Company Number: DE-ADRED-05999-01

PATIENT
  Age: 84 Year
  Sex: Female

DRUGS (11)
  1. BISOPROLOL [Suspect]
     Active Substance: BISOPROLOL
     Indication: Product used for unknown indication
     Dosage: 5 MG, 1.5-0-0-0, TABLETS
     Route: 048
  2. LEVOTHYROXINE [Concomitant]
     Active Substance: LEVOTHYROXINE
     Dosage: 125 ?G, 1-0-0-0, TABLET
     Route: 048
  3. PANTOPRAZOLE [Concomitant]
     Active Substance: PANTOPRAZOLE
     Dosage: 40 MG, 1-0-0-0, TABLET
     Route: 048
  4. CANDESARTAN [Concomitant]
     Active Substance: CANDESARTAN
     Dosage: 8 MG, 1-0-0-0, TABLET
     Route: 048
  5. SIMVASTATIN [Concomitant]
     Active Substance: SIMVASTATIN
     Dosage: 40 MG, 0-0-1-0, TABLET
     Route: 048
  6. ALLOPURINOL [Concomitant]
     Active Substance: ALLOPURINOL
     Dosage: 300 MG, 0-0-1-0, TABLET
     Route: 048
  7. METAMIZOLE [Concomitant]
     Active Substance: METAMIZOLE
     Dosage: 500 MG, 1-1-1-1, TABLET
     Route: 048
  8. APIXABAN [Concomitant]
     Active Substance: APIXABAN
     Dosage: 2.5 MG, 1-0-1-0, TABLETTEN
     Route: 048
  9. FUROSEMIDE [Concomitant]
     Active Substance: FUROSEMIDE
     Dosage: 125 MG, 1-1-0-0, TABLETTEN
     Route: 048
  10. RISPERIDONE [Concomitant]
     Active Substance: RISPERIDONE
     Dosage: 0.5 MG, 1-0-0-0, DRAGEES
     Route: 048
  11. XIPAMIDE [Concomitant]
     Active Substance: XIPAMIDE
     Dosage: 40 MG, 1-0-0-0, TABLETTEN
     Route: 048

REACTIONS (2)
  - Hypoxia [Unknown]
  - Depressed level of consciousness [Unknown]
